FAERS Safety Report 19256148 (Version 1)
Quarter: 2021Q2

REPORT INFORMATION
  Report Type: Report from Study
  Country: IT (occurrence: IT)
  Receive Date: 20210513
  Receipt Date: 20210513
  Transmission Date: 20210717
  Serious: Yes (Hospitalization)
  Sender: FDA-Public Use
  Company Number: IT-ALLERGAN-2117578US

PATIENT
  Sex: Male

DRUGS (2)
  1. ALPRAZIG [Suspect]
     Active Substance: ALPRAZOLAM
     Indication: DEPRESSION
     Dosage: ALPRAZIG 0,75 MG/ML
     Route: 048
  2. ESCITALOPRAM OXALATE UNK [Suspect]
     Active Substance: ESCITALOPRAM OXALATE
     Indication: DEPRESSION
     Dosage: OVERDOSE: 15 ML (300MG),CIPRALEX 20 MG/ML
     Route: 048

REACTIONS (4)
  - Sopor [Unknown]
  - Nystagmus [Unknown]
  - Suicidal ideation [Unknown]
  - Overdose [Unknown]

NARRATIVE: CASE EVENT DATE: 20210422
